FAERS Safety Report 18551918 (Version 1)
Quarter: 2020Q4

REPORT INFORMATION
  Report Type: Spontaneous
  Country: DE (occurrence: DE)
  Receive Date: 20201126
  Receipt Date: 20201126
  Transmission Date: 20210114
  Serious: Yes (Hospitalization, Other)
  Sender: FDA-Public Use
  Company Number: DE-009507513-2011DEU014092

PATIENT
  Age: 27 Year
  Sex: Female

DRUGS (1)
  1. PEMBROLIZUMAB. [Suspect]
     Active Substance: PEMBROLIZUMAB
     Indication: MALIGNANT MELANOMA
     Dosage: 200 MG, EVERY 3 WEEKS
     Dates: start: 201906, end: 20200421

REACTIONS (11)
  - Autoimmune thyroiditis [Unknown]
  - Autoimmune hepatitis [Unknown]
  - Tumour marker increased [Unknown]
  - Tachycardia [Unknown]
  - Reticuloendothelial system stimulated [Unknown]
  - Serositis [Unknown]
  - Pyrexia [Unknown]
  - Autoimmune colitis [Unknown]
  - Conjunctival oedema [Unknown]
  - Generalised oedema [Unknown]
  - Pleural effusion [Unknown]

NARRATIVE: CASE EVENT DATE: 201909
